FAERS Safety Report 7319226-2 (Version None)
Quarter: 2011Q1

REPORT INFORMATION
  Report Type: 
  Country: None (occurrence: None)
  Receive Date: 20110228
  Receipt Date: 20110222
  Transmission Date: 20110831
  Serious: Yes (Other)
  Sender: FDA-Public Use
  Company Number: DK-PFIZER INC-2011038895

PATIENT
  Age: 55 Year
  Sex: Female
  Weight: 63 kg

DRUGS (1)
  1. CHAMPIX [Suspect]
     Indication: SMOKING CESSATION THERAPY
     Route: 048
     Dates: start: 20110121, end: 20110211

REACTIONS (11)
  - PARANOIA [None]
  - SLEEP DISORDER [None]
  - SUICIDAL IDEATION [None]
  - HALLUCINATION [None]
  - DEPRESSION [None]
  - OBSESSIVE THOUGHTS [None]
  - NAUSEA [None]
  - PSYCHOTIC DISORDER [None]
  - AGGRESSION [None]
  - ABNORMAL DREAMS [None]
  - ANXIETY [None]
